FAERS Safety Report 26076133 (Version 1)
Quarter: 2025Q4

REPORT INFORMATION
  Report Type: Report from Study
  Country: US (occurrence: US)
  Receive Date: 20251121
  Receipt Date: 20251121
  Transmission Date: 20260117
  Serious: No
  Sender: DR REDDYS
  Company Number: US-DRL-USA-USA/2025/11/017141

PATIENT
  Age: 21 Year

DRUGS (1)
  1. ACCUTANE [Suspect]
     Active Substance: ISOTRETINOIN
     Indication: Product used for unknown indication
     Dosage: THERAPY START DATE: 01-NOV-2025
     Dates: start: 2025

REACTIONS (4)
  - Cyst [Unknown]
  - Nodule [Unknown]
  - Acne [Unknown]
  - Erythema [Unknown]

NARRATIVE: CASE EVENT DATE: 20250924
